FAERS Safety Report 4752227-7 (Version None)
Quarter: 2005Q3

REPORT INFORMATION
  Report Type: 
  Country: None (occurrence: None)
  Receive Date: 20050825
  Receipt Date: 20050117
  Transmission Date: 20060218
  Serious: Yes (Hospitalization)
  Sender: FDA-Public Use
  Company Number: US-ABBOTT-05P-163-0286907-00

PATIENT
  Sex: Female
  Weight: 52.21 kg

DRUGS (5)
  1. HUMIRA [Suspect]
     Indication: RHEUMATOID ARTHRITIS
     Route: 058
     Dates: start: 20041001
  2. METHOTREXATE SODIUM [Concomitant]
     Indication: RHEUMATOID ARTHRITIS
     Route: 048
     Dates: start: 20040101
  3. OXYCODONE [Concomitant]
     Indication: PAIN
     Route: 048
  4. GABAPENTIN [Concomitant]
     Indication: NEUROPATHY
     Route: 048
  5. CARISOPRODOL [Concomitant]
     Indication: MUSCLE SPASMS
     Route: 048

REACTIONS (3)
  - OVARIAN CYST [None]
  - OVARIAN CYST RUPTURED [None]
  - VAGINAL HAEMORRHAGE [None]
